FAERS Safety Report 4499200-4 (Version None)
Quarter: 2004Q4

REPORT INFORMATION
  Report Type: 
  Country: None (occurrence: None)
  Receive Date: 20041111
  Receipt Date: 20041018
  Transmission Date: 20050328
  Serious: Yes (Other)
  Sender: FDA-Public Use
  Company Number: US-GLAXOSMITHKLINE-A0530191A

PATIENT
  Age: 68 Year
  Sex: Female

DRUGS (7)
  1. ADVAIR [Suspect]
     Indication: ASTHMA
     Dosage: 1PUFF TWICE PER DAY
     Route: 055
  2. HYDROGEN PEROXIDE SOLUTION [Suspect]
  3. BIOFLAVONOIDS [Concomitant]
  4. FLAX SEED OIL [Concomitant]
  5. MULTI-VITAMINS [Concomitant]
  6. CALCIUM SUPPLEMENT [Concomitant]
  7. VITAMIN E [Concomitant]

REACTIONS (7)
  - CONTUSION [None]
  - INJECTION SITE PAIN [None]
  - NASOPHARYNGITIS [None]
  - PAIN IN EXTREMITY [None]
  - RASH [None]
  - VASCULITIS [None]
  - VEIN PAIN [None]
